FAERS Safety Report 5469441-8 (Version None)
Quarter: 2007Q3

REPORT INFORMATION
  Report Type: 
  Country: None (occurrence: None)
  Receive Date: 20070927
  Receipt Date: 20070918
  Transmission Date: 20080115
  Serious: Yes (Other)
  Sender: FDA-Public Use
  Company Number: CO-JNJFOC-20070904147

PATIENT
  Age: 4 Year
  Sex: Female

DRUGS (1)
  1. TOPAMAC [Suspect]
     Indication: PARTIAL SEIZURES
     Route: 048

REACTIONS (1)
  - AGORAPHOBIA [None]
